FAERS Safety Report 5395753-2 (Version None)
Quarter: 2007Q3

REPORT INFORMATION
  Report Type: 
  Country: None (occurrence: None)
  Receive Date: 20070724
  Receipt Date: 20070712
  Transmission Date: 20080115
  Serious: Yes (Hospitalization, Other)
  Sender: FDA-Public Use
  Company Number: US-PFIZER INC-2006149978

PATIENT
  Sex: Female
  Weight: 76.2 kg

DRUGS (8)
  1. CELEBREX [Suspect]
     Indication: ARTHRITIS
     Dates: start: 19990101, end: 20040930
  2. BEXTRA [Suspect]
     Indication: ARTHRITIS
     Dates: start: 20011101, end: 20040930
  3. VIOXX [Suspect]
     Dates: start: 20010818, end: 20040901
  4. TYLENOL W/ CODEINE [Concomitant]
     Dates: start: 20020301, end: 20021201
  5. HYDROCODONE BITARTRATE + ACETAMINOPHEN [Concomitant]
     Dates: start: 20010701, end: 20031101
  6. QUININE SULFATE [Concomitant]
     Dates: start: 20010501, end: 20031201
  7. TYLENOL W/ CODEINE NO. 3 [Concomitant]
     Dates: start: 20010301, end: 20030501
  8. LEVOXYL [Concomitant]
     Indication: HORMONE REPLACEMENT THERAPY

REACTIONS (3)
  - ACUTE CORONARY SYNDROME [None]
  - CARDIAC FAILURE CONGESTIVE [None]
  - MYOCARDIAL INFARCTION [None]
